FAERS Safety Report 13212552 (Version 1)
Quarter: 2017Q1

REPORT INFORMATION
  Report Type: Spontaneous
  Country: CH (occurrence: CH)
  Receive Date: 20170210
  Receipt Date: 20170210
  Transmission Date: 20170428
  Serious: Yes (Other)
  Sender: FDA-Public Use
  Company Number: CH-ROCHE-1890793

PATIENT
  Sex: Female

DRUGS (10)
  1. SERETIDE [Concomitant]
     Active Substance: FLUTICASONE PROPIONATE\SALMETEROL XINAFOATE
     Indication: ASTHMA
     Route: 055
     Dates: end: 201610
  2. DORMICUM (ORAL) [Suspect]
     Active Substance: MIDAZOLAM MALEATE
     Indication: INSOMNIA
     Route: 048
     Dates: start: 2010
  3. DAFALGAN [Concomitant]
     Active Substance: ACETAMINOPHEN
     Indication: INTERVERTEBRAL DISC PROTRUSION
     Route: 048
  4. VANNAIR [Concomitant]
     Active Substance: BUDESONIDE\FORMOTEROL FUMARATE DIHYDRATE
     Indication: ASTHMA
     Route: 055
     Dates: end: 201610
  5. VENTOLIN [Concomitant]
     Active Substance: ALBUTEROL SULFATE
     Indication: ASTHMA
     Route: 055
     Dates: start: 2012, end: 201610
  6. VALIUM [Suspect]
     Active Substance: DIAZEPAM
     Indication: EPILEPSY
     Route: 048
  7. RIVOTRIL [Suspect]
     Active Substance: CLONAZEPAM
     Indication: EPILEPSY
     Route: 048
  8. MORPHINE [Suspect]
     Active Substance: MORPHINE
     Indication: INTERVERTEBRAL DISC PROTRUSION
     Route: 048
     Dates: start: 2012
  9. DIANE (CYPROTERONE ACETATE\ETHINYL ESTRADIOL) [Suspect]
     Active Substance: CYPROTERONE ACETATE\ETHINYL ESTRADIOL
     Indication: ORAL CONTRACEPTION
     Route: 048
  10. ZOFRAN [Concomitant]
     Active Substance: ONDANSETRON HYDROCHLORIDE
     Indication: NAUSEA
     Route: 048
     Dates: end: 201610

REACTIONS (2)
  - Maternal exposure during pregnancy [Unknown]
  - Abortion spontaneous [Unknown]
